FAERS Safety Report 8369330-5 (Version None)
Quarter: 2012Q2

REPORT INFORMATION
  Report Type: 
  Country: None (occurrence: None)
  Receive Date: 20120518
  Receipt Date: 20120515
  Transmission Date: 20120825
  Serious: Yes (Disabling, Other)
  Sender: FDA-Public Use
  Company Number: PHEH2012US007754

PATIENT
  Sex: Female
  Weight: 79.8 kg

DRUGS (1)
  1. SANDOSTATIN [Suspect]
     Indication: CARCINOID SYNDROME
     Dosage: 30 MG, QMO
     Route: 030
     Dates: start: 20110525

REACTIONS (2)
  - TRICUSPID VALVE INCOMPETENCE [None]
  - CARDIAC MURMUR [None]
